FAERS Safety Report 13991024 (Version 1)
Quarter: 2017Q3

REPORT INFORMATION
  Report Type: Spontaneous
  Country: US (occurrence: None)
  Receive Date: 20170920
  Receipt Date: 20170920
  Transmission Date: 20171128
  Serious: Yes (Life-Threatening)
  Sender: FDA-Public Use
  Company Number: None

PATIENT
  Age: 70 Year
  Sex: Female
  Weight: 65.77 kg

DRUGS (8)
  1. CLONOPIN [Concomitant]
     Active Substance: CLONAZEPAM
  2. QUETIAPINE FUMARATE 300 MG, MFG LUPIN - GENERIC FOR SEROQUEL [Suspect]
     Active Substance: QUETIAPINE FUMARATE
     Indication: INSOMNIA
     Dosage: 300 MG, 2 AT NIGHT, BEDTIME, MOUTH
     Route: 048
     Dates: start: 2007, end: 20170312
  3. QUETIAPINE FUMARATE 300 MG, MFG LUPIN - GENERIC FOR SEROQUEL [Suspect]
     Active Substance: QUETIAPINE FUMARATE
     Indication: BIPOLAR DISORDER
     Dosage: 300 MG, 2 AT NIGHT, BEDTIME, MOUTH
     Route: 048
     Dates: start: 2007, end: 20170312
  4. WELLBUTRIN [Concomitant]
     Active Substance: BUPROPION HYDROCHLORIDE
  5. MILK OF MAGNESIA [Concomitant]
     Active Substance: MAGNESIUM HYDROXIDE
  6. MUCASIN [Concomitant]
  7. SEROQUEL [Concomitant]
     Active Substance: QUETIAPINE FUMARATE
  8. SULINDAC. [Concomitant]
     Active Substance: SULINDAC

REACTIONS (2)
  - Heart rate increased [None]
  - Euphoric mood [None]

NARRATIVE: CASE EVENT DATE: 20170312
